FAERS Safety Report 5603044-7 (Version None)
Quarter: 2008Q1

REPORT INFORMATION
  Report Type: 
  Country: None (occurrence: None)
  Receive Date: 20080125
  Receipt Date: 20080115
  Transmission Date: 20080703
  Serious: Yes (Hospitalization)
  Sender: FDA-Public Use
  Company Number: DE-PFIZER INC-2006128817

PATIENT
  Sex: Female
  Weight: 64 kg

DRUGS (1)
  1. SU-011,248 [Suspect]
     Indication: METASTATIC RENAL CELL CARCINOMA
     Route: 048
     Dates: start: 20060922, end: 20061017

REACTIONS (3)
  - FACIAL BONES FRACTURE [None]
  - FALL [None]
  - SUBDURAL HAEMATOMA [None]
